FAERS Safety Report 5954471-X (Version None)
Quarter: 2008Q4

REPORT INFORMATION
  Report Type: 
  Country: None (occurrence: None)
  Receive Date: 20081113
  Receipt Date: 20081106
  Transmission Date: 20090506
  Serious: Yes (Other)
  Sender: FDA-Public Use
  Company Number: 2008SP022589

PATIENT
  Age: 57 Year
  Sex: Male

DRUGS (2)
  1. INTRON A [Suspect]
     Indication: RENAL CELL CARCINOMA
     Dosage: 3  MIU; TIW; SC
     Route: 058
  2. ZOLEDRONIX ACID [Concomitant]

REACTIONS (2)
  - PYELONEPHRITIS [None]
  - TRANSPLANT REJECTION [None]
